FAERS Safety Report 25159556 (Version 2)
Quarter: 2025Q2

REPORT INFORMATION
  Report Type: Report from Study
  Country: ES (occurrence: ES)
  Receive Date: 20250404
  Receipt Date: 20250516
  Transmission Date: 20250717
  Serious: Yes (Life-Threatening, Hospitalization)
  Sender: AUROBINDO
  Company Number: ES-VIR-ES-IQFVIRFV-9017

PATIENT
  Age: 75 Year
  Sex: Male

DRUGS (2)
  1. AZITHROMYCIN [Suspect]
     Active Substance: AZITHROMYCIN
     Indication: COVID-19
     Route: 065
  2. FUROSEMIDE [Suspect]
     Active Substance: FUROSEMIDE
     Indication: Anuria
     Route: 065

REACTIONS (3)
  - Anaemia [Unknown]
  - Haemodynamic instability [Recovered/Resolved]
  - Drug ineffective [Recovered/Resolved]
